FAERS Safety Report 23761999 (Version 3)
Quarter: 2024Q2

REPORT INFORMATION
  Report Type: Spontaneous
  Country: JP (occurrence: JP)
  Receive Date: 20240419
  Receipt Date: 20240624
  Transmission Date: 20240716
  Serious: Yes (Death, Other)
  Sender: FDA-Public Use
  Company Number: JP-OTSUKA-2024_011108

PATIENT
  Age: 41 Year
  Sex: Male

DRUGS (10)
  1. REXULTI [Interacting]
     Active Substance: BREXPIPRAZOLE
     Indication: Bipolar disorder
     Dosage: OVERDOSING ON A 3-WEEK PRESCRIPTION
     Route: 048
     Dates: start: 20220927, end: 20220927
  2. REXULTI [Interacting]
     Active Substance: BREXPIPRAZOLE
     Indication: Bipolar I disorder
     Dosage: 1 MG/DAY
     Route: 048
     Dates: start: 20190213, end: 20220927
  3. CYMBALTA [Concomitant]
     Active Substance: DULOXETINE HYDROCHLORIDE
     Indication: Product used for unknown indication
     Dosage: 60 MG/DAY
     Route: 048
  4. VALPROATE SODIUM [Concomitant]
     Active Substance: VALPROATE SODIUM
     Indication: Product used for unknown indication
     Dosage: 400 MG/DAY
     Route: 048
  5. BENFOTIAMINE;CYANOCOBALAMIN;PYRIDOXINE HYDROCHLORIDE [Concomitant]
     Indication: Product used for unknown indication
     Dosage: 3 CAPSULES
     Route: 048
  6. DIAZEPAM [Concomitant]
     Active Substance: DIAZEPAM
     Indication: Product used for unknown indication
     Dosage: 1T, 5MG/DAY
     Route: 048
  7. BELSOMRA [Concomitant]
     Active Substance: SUVOREXANT
     Indication: Product used for unknown indication
     Dosage: 1T, 20MG/DAY
     Route: 048
  8. NITRAZEPAM [Concomitant]
     Active Substance: NITRAZEPAM
     Indication: Product used for unknown indication
     Dosage: 1T, 10MG/DAY
     Route: 048
  9. VALPROATE SODIUM [Concomitant]
     Active Substance: VALPROATE SODIUM
     Indication: Product used for unknown indication
     Dosage: 2 TABLETS, 400MG/DAY
     Route: 048
  10. DULOXETINE HYDROCHLORIDE [Concomitant]
     Active Substance: DULOXETINE HYDROCHLORIDE
     Indication: Product used for unknown indication
     Dosage: 3 TABLETS, 60MG/DAY
     Route: 048

REACTIONS (3)
  - Completed suicide [Fatal]
  - Overdose [Fatal]
  - Alcohol interaction [Fatal]

NARRATIVE: CASE EVENT DATE: 20220927
